FAERS Safety Report 7952161-5 (Version None)
Quarter: 2011Q4

REPORT INFORMATION
  Report Type: 
  Country: None (occurrence: None)
  Receive Date: 20111201
  Receipt Date: 20111129
  Transmission Date: 20120403
  Serious: Yes (Death)
  Sender: FDA-Public Use
  Company Number: PHEH2011US010475

PATIENT
  Sex: Male

DRUGS (1)
  1. GLEEVEC [Suspect]
     Indication: LYMPHOEDEMA
     Dosage: 200 MG, DAILY
     Route: 048
     Dates: start: 20110914, end: 20111004

REACTIONS (1)
  - DEATH [None]
